FAERS Safety Report 7484645-0 (Version None)
Quarter: 2011Q2

REPORT INFORMATION
  Report Type: 
  Country: None (occurrence: None)
  Receive Date: 20110517
  Receipt Date: 20101124
  Transmission Date: 20111010
  Serious: Yes (Life-Threatening, Hospitalization, Other)
  Sender: FDA-Public Use
  Company Number: US-BAYER-200937546NA

PATIENT
  Age: 32 Year
  Sex: Female
  Weight: 59 kg

DRUGS (9)
  1. SPIRONOLACTONE [Concomitant]
     Dates: start: 20070101, end: 20080615
  2. BACTRIM [Concomitant]
     Indication: URINARY TRACT INFECTION
  3. NAPROXEN (ALEVE) [Concomitant]
  4. YASMIN [Suspect]
     Indication: PRODUCT USED FOR UNKNOWN INDICATION
     Dosage: UNK
     Dates: start: 20050501, end: 20080101
  5. BENZACLIN [Concomitant]
     Indication: ACNE
     Route: 061
     Dates: start: 20060101
  6. YAZ [Suspect]
     Indication: ACNE
     Dosage: 0.02 MG ETHINYL ESTRADIOL 3 MG DROSPIRENONE
     Route: 048
     Dates: start: 20080306, end: 20080801
  7. PLEXION [Concomitant]
     Indication: ACNE
     Dates: start: 20060101
  8. PRILOSEC [Concomitant]
  9. SINGULAIR [Concomitant]
     Dates: start: 20080101

REACTIONS (9)
  - PULMONARY THROMBOSIS [None]
  - PAIN [None]
  - CHOLELITHIASIS [None]
  - ANXIETY [None]
  - NAUSEA [None]
  - PULMONARY EMBOLISM [None]
  - MUSCULOSKELETAL PAIN [None]
  - DYSPNOEA [None]
  - CHOLECYSTITIS CHRONIC [None]
